FAERS Safety Report 25228365 (Version 1)
Quarter: 2025Q2

REPORT INFORMATION
  Report Type: Spontaneous
  Country: US (occurrence: US)
  Receive Date: 20250423
  Receipt Date: 20250423
  Transmission Date: 20250717
  Serious: Yes (Other)
  Sender: BRAINTREE
  Company Number: US-BRAINTREE LABORATORIES, INC.-2025BTE00228

PATIENT
  Sex: Female

DRUGS (7)
  1. SUFLAVE [Suspect]
     Active Substance: MAGNESIUM SULFATE ANHYDROUS\POLYETHYLENE GLYCOL 3350\POTASSIUM CHLORIDE\SODIUM CHLORIDE\SODIUM SULFA
     Indication: Colonoscopy
     Route: 048
     Dates: start: 20250407, end: 20250408
  2. GAS-X MAX STRENGTH [Concomitant]
  3. PRIMIDONE [Concomitant]
     Active Substance: PRIMIDONE
  4. FLUPHENAZINE [Concomitant]
     Active Substance: FLUPHENAZINE
  5. BUSPIRONE [Concomitant]
     Active Substance: BUSPIRONE HYDROCHLORIDE
  6. OMEPRAZOLE [Concomitant]
     Active Substance: OMEPRAZOLE
  7. TRILEPTAL [Concomitant]
     Active Substance: OXCARBAZEPINE

REACTIONS (3)
  - Hypersensitivity [Recovering/Resolving]
  - Rash pruritic [Recovering/Resolving]
  - Rash macular [Recovering/Resolving]

NARRATIVE: CASE EVENT DATE: 20250407
